FAERS Safety Report 18164630 (Version 1)
Quarter: 2020Q3

REPORT INFORMATION
  Report Type: Other
  Country: IT (occurrence: IT)
  Receive Date: 20200818
  Receipt Date: 20200818
  Transmission Date: 20201103
  Serious: Yes (Other)
  Sender: FDA-Public Use
  Company Number: IT-GE HEALTHCARE LIFE SCIENCES-2020CSU003592

PATIENT

DRUGS (2)
  1. CLARICYCLIC [Suspect]
     Active Substance: GADOTERATE MEGLUMINE
     Indication: PRODUCT USED FOR UNKNOWN INDICATION
  2. CLARICYCLIC [Suspect]
     Active Substance: GADOTERATE MEGLUMINE
     Indication: MAGNETIC RESONANCE IMAGING BRAIN
     Dosage: 20 ML, SINGLE
     Route: 042
     Dates: start: 20200710, end: 20200710

REACTIONS (5)
  - Eye oedema [Recovering/Resolving]
  - Cough [Recovering/Resolving]
  - Face oedema [Recovering/Resolving]
  - Dyspnoea [Recovering/Resolving]
  - Lip oedema [Recovering/Resolving]

NARRATIVE: CASE EVENT DATE: 20200710
